FAERS Safety Report 7469171-7 (Version None)
Quarter: 2011Q2

REPORT INFORMATION
  Report Type: 
  Country: None (occurrence: None)
  Receive Date: 20110510
  Receipt Date: 20110407
  Transmission Date: 20111010
  Serious: Yes (Other)
  Sender: FDA-Public Use
  Company Number: US-BAYER-201012511NA

PATIENT
  Age: 17 Year
  Sex: Female
  Weight: 129.25 kg

DRUGS (8)
  1. ALLEGRA [Concomitant]
     Route: 048
  2. YASMIN [Suspect]
     Indication: MIGRAINE
     Dosage: UNK
     Dates: start: 20040821, end: 20080815
  3. DEPAKOTE [Concomitant]
     Route: 048
  4. TRANXENE [Concomitant]
     Route: 048
  5. IBUPROFEN [Concomitant]
  6. YASMIN [Suspect]
     Indication: MENSTRUATION IRREGULAR
  7. DROSPIRENONE AND ETHINYL ESTRADIOL [Suspect]
     Indication: MIGRAINE
     Dosage: UNK
     Dates: start: 20080914, end: 20091207
  8. MOTRIN [Concomitant]

REACTIONS (4)
  - GALLBLADDER DISORDER [None]
  - CHOLECYSTITIS CHRONIC [None]
  - ABDOMINAL PAIN [None]
  - CHOLECYSTECTOMY [None]
